FAERS Safety Report 4827057-8 (Version None)
Quarter: 2005Q4

REPORT INFORMATION
  Report Type: 
  Country: None (occurrence: None)
  Receive Date: 20051014
  Receipt Date: 20050628
  Transmission Date: 20060501
  Serious: No
  Sender: FDA-Public Use
  Company Number: 2005SP000338

PATIENT
  Age: 72 Year
  Sex: Female

DRUGS (1)
  1. LUNESTA [Suspect]
     Dosage: 2 MG; 1X;
     Dates: start: 20050401, end: 20050401

REACTIONS (2)
  - INSOMNIA [None]
  - NIGHTMARE [None]
